FAERS Safety Report 12671503 (Version 9)
Quarter: 2016Q4

REPORT INFORMATION
  Report Type: Spontaneous
  Country: TW (occurrence: TW)
  Receive Date: 20160822
  Receipt Date: 20161020
  Transmission Date: 20170207
  Serious: Yes (Other)
  Sender: FDA-Public Use
  Company Number: TW-PFIZER INC-2016386046

PATIENT
  Age: 28 Year
  Sex: Male

DRUGS (2)
  1. BENEFIX [Suspect]
     Active Substance: COAGULATION FACTOR IX RECOMBINANT HUMAN\ISOPROPYL ALCOHOL
     Indication: HAEMOPHILIA
     Dosage: 3500 IU, ONCE EVERY 5 DAYS
     Route: 042
  2. BENEFIX [Suspect]
     Active Substance: COAGULATION FACTOR IX RECOMBINANT HUMAN\ISOPROPYL ALCOHOL
     Dosage: 3500 IU, UNK
     Route: 042
     Dates: start: 20160806, end: 20160806

REACTIONS (7)
  - Contusion [Recovered/Resolved]
  - Fall [Recovered/Resolved]
  - Haematoma [Recovered/Resolved]
  - Joint swelling [Recovered/Resolved]
  - Ligament sprain [Recovered/Resolved]
  - Musculoskeletal discomfort [Recovered/Resolved]
  - Pain in extremity [Recovered/Resolved]

NARRATIVE: CASE EVENT DATE: 20160806
